FAERS Safety Report 7465812-9 (Version None)
Quarter: 2011Q2

REPORT INFORMATION
  Report Type: 
  Country: None (occurrence: None)
  Receive Date: 20110509
  Receipt Date: 20100406
  Transmission Date: 20111010
  Serious: No
  Sender: FDA-Public Use
  Company Number: US-ALEXION-A201000024

PATIENT
  Sex: Male

DRUGS (11)
  1. ALTACE [Concomitant]
     Dosage: 2.5, QD
     Route: 048
  2. LASIX [Concomitant]
     Dosage: 20 MG, BID
     Route: 048
  3. AMBIEN [Concomitant]
     Dosage: 10 MG, PRN
     Route: 048
  4. SOLIRIS [Suspect]
     Indication: PAROXYSMAL NOCTURNAL HAEMOGLOBINURIA
     Dosage: 600 MG, SINGLE
     Route: 042
     Dates: start: 20090126, end: 20090126
  5. EXJADE [Suspect]
     Dosage: UNK
     Dates: end: 20100201
  6. PRILOSEC [Concomitant]
     Dosage: 20 MG, PRN
     Route: 048
  7. LIPITOR [Concomitant]
     Dosage: 40 MG, QD
     Route: 048
  8. TOPROL-XL [Concomitant]
     Dosage: 50 MG, QD
     Route: 048
  9. SOLIRIS [Suspect]
     Dosage: 600 MG, QW
     Route: 042
     Dates: start: 20090201, end: 20090301
  10. SOLIRIS [Suspect]
     Dosage: 900 MG, Q2W
     Route: 042
     Dates: start: 20090301
  11. FOLIC ACID [Concomitant]
     Dosage: 1 MG, QD
     Route: 048

REACTIONS (9)
  - EAR HAEMORRHAGE [None]
  - ACTIVITIES OF DAILY LIVING IMPAIRED [None]
  - MICTURITION DISORDER [None]
  - EATING DISORDER [None]
  - THIRST [None]
  - JAUNDICE [None]
  - HYPOTENSION [None]
  - FATIGUE [None]
  - HAEMOGLOBIN DECREASED [None]
